FAERS Safety Report 15498672 (Version 1)
Quarter: 2018Q4

REPORT INFORMATION
  Report Type: Spontaneous
  Country: US (occurrence: US)
  Receive Date: 20181015
  Receipt Date: 20181015
  Transmission Date: 20190205
  Serious: No
  Sender: FDA-Public Use
  Company Number: US-BAYER-2018-191473

PATIENT
  Age: 93 Year
  Sex: Female

DRUGS (1)
  1. ULTRAVIST [Suspect]
     Active Substance: IOPROMIDE
     Indication: ABDOMEN SCAN
     Dosage: 100 ML, ONCE
     Dates: start: 20180708, end: 20180708

REACTIONS (1)
  - Blood parathyroid hormone decreased [None]
